FAERS Safety Report 9299234 (Version 3)
Quarter: 2013Q3

REPORT INFORMATION
  Report Type: Spontaneous
  Country: US (occurrence: US)
  Receive Date: 20130520
  Receipt Date: 20130927
  Transmission Date: 20140515
  Serious: Yes (Life-Threatening, Hospitalization, Other)
  Sender: FDA-Public Use
  Company Number: US-ELI_LILLY_AND_COMPANY-US201305003249

PATIENT
  Age: 38 Year
  Sex: Male
  Weight: 97 kg

DRUGS (2)
  1. CYMBALTA [Suspect]
     Indication: DEPRESSION
     Dosage: 60 MG, QD
     Route: 048
     Dates: start: 20120716
  2. LORAZEPAM [Suspect]
     Indication: ANXIETY
     Dosage: 2 MG, PRN
     Route: 048
     Dates: start: 200908

REACTIONS (13)
  - Pancreatitis acute [Recovered/Resolved]
  - Renal failure acute [Recovered/Resolved]
  - Pneumonia [Recovered/Resolved]
  - Dehydration [Recovered/Resolved]
  - Tracheal stenosis [Unknown]
  - Dysphagia [Not Recovered/Not Resolved]
  - Blood gases abnormal [Unknown]
  - Hyponatraemia [Unknown]
  - Lipase increased [Unknown]
  - Dysphonia [Unknown]
  - Stridor [Recovered/Resolved]
  - Dyspnoea [Unknown]
  - Gamma-glutamyltransferase increased [Unknown]
